FAERS Safety Report 5647674-5 (Version None)
Quarter: 2008Q1

REPORT INFORMATION
  Report Type: 
  Country: None (occurrence: None)
  Receive Date: 20080303
  Receipt Date: 20080220
  Transmission Date: 20080703
  Serious: Yes (Life-Threatening, Other)
  Sender: FDA-Public Use
  Company Number: FR-PFIZER INC-2007099736

PATIENT
  Sex: Female
  Weight: 72 kg

DRUGS (13)
  1. LYRICA [Suspect]
     Indication: NEURALGIA
     Dates: start: 20070409, end: 20070418
  2. LYRICA [Suspect]
     Indication: HERPES ZOSTER
  3. COVERSYL [Concomitant]
  4. CRESTOR [Concomitant]
  5. LANTUS [Concomitant]
  6. FUROSEMIDE [Concomitant]
  7. DIAMICRON [Concomitant]
  8. PLAVIX [Concomitant]
  9. LEVOTHYROX [Concomitant]
  10. PIASCLEDINE [Concomitant]
  11. DI-ANTALVIC [Concomitant]
  12. GLUCOR [Concomitant]
  13. CELECTOL [Concomitant]

REACTIONS (3)
  - HYPERCHOLESTEROLAEMIA [None]
  - HYPERTRIGLYCERIDAEMIA [None]
  - PANCREATITIS ACUTE [None]
